FAERS Safety Report 4878403-0 (Version None)
Quarter: 2005Q4

REPORT INFORMATION
  Report Type: 
  Country: None (occurrence: None)
  Receive Date: 20051215
  Receipt Date: 20050824
  Transmission Date: 20060501
  Serious: Yes (Hospitalization, Disabling)
  Sender: FDA-Public Use
  Company Number: US-JNJFOC-20050801800

PATIENT
  Age: 36 Year
  Sex: Female
  Weight: 63.9572 kg

DRUGS (1)
  1. ORTHO EVRA [Suspect]
     Dosage: 1 DOSE(S), 3 IN 4 WEEK, TRANSDERMAL
     Route: 062

REACTIONS (2)
  - CAVERNOUS SINUS THROMBOSIS [None]
  - HYPERTENSION [None]
